FAERS Safety Report 9085167 (Version 1)
Quarter: 2013Q1

REPORT INFORMATION
  Report Type: Report from Study
  Country: US (occurrence: US)
  Receive Date: 20130131
  Receipt Date: 20130131
  Transmission Date: 20140127
  Serious: No
  Sender: FDA-Public Use
  Company Number: US-ABBOTT-12P-163-0995650-00

PATIENT
  Age: 44 Year
  Sex: Female

DRUGS (10)
  1. HUMIRA [Suspect]
     Indication: RHEUMATOID ARTHRITIS
     Dates: start: 20121004
  2. METHOTREXATE [Concomitant]
     Indication: RHEUMATOID ARTHRITIS
     Dosage: 10 TABS WEEKLY
  3. PREDNISONE [Concomitant]
     Indication: RHEUMATOID ARTHRITIS
     Dosage: 5MG DAILY
  4. SEROQUEL [Concomitant]
     Indication: BIPOLAR DISORDER
  5. SEROQUEL [Concomitant]
     Indication: DEPRESSION
  6. OXCARBAZEPINE [Concomitant]
     Indication: BIPOLAR DISORDER
     Dosage: AT HOUR OF SLEEP
  7. SULFASALAZINE [Concomitant]
     Indication: RHEUMATOID ARTHRITIS
     Dosage: 2 TABS TWICE DAILY
  8. MULTIVITAMIN [Concomitant]
     Indication: PRODUCT USED FOR UNKNOWN INDICATION
     Dosage: ONE DAILY
  9. VITAMIN D [Concomitant]
     Indication: PRODUCT USED FOR UNKNOWN INDICATION
     Dosage: 1000IU DAILY
  10. UNKNOWN MEDICATION [Concomitant]
     Indication: NAUSEA

REACTIONS (1)
  - Injection site erythema [Recovering/Resolving]
